FAERS Safety Report 9131012 (Version 2)
Quarter: 2013Q1

REPORT INFORMATION
  Report Type: Spontaneous
  Country: JP (occurrence: JP)
  Receive Date: 20130301
  Receipt Date: 20130312
  Transmission Date: 20140127
  Serious: Yes (Hospitalization, Other)
  Sender: FDA-Public Use
  Company Number: JP-BRISTOL-MYERS SQUIBB COMPANY-17293309

PATIENT
  Age: 68 Year
  Sex: Male
  Weight: 52 kg

DRUGS (7)
  1. ABILIFY TABS [Suspect]
     Indication: PERSECUTORY DELUSION
     Dosage: 03MAR11-02MAR12:1.5MG/D
     Route: 048
     Dates: start: 20110303, end: 20120302
  2. ABILIFY TABS [Suspect]
     Indication: ABNORMAL BEHAVIOUR
     Dosage: 03MAR11-02MAR12:1.5MG/D
     Route: 048
     Dates: start: 20110303, end: 20120302
  3. ABILIFY TABS [Suspect]
     Indication: COMPULSIONS
     Dosage: 03MAR11-02MAR12:1.5MG/D
     Route: 048
     Dates: start: 20110303, end: 20120302
  4. SODIUM VALPROATE [Suspect]
     Indication: MOOD SWINGS
     Dosage: 17DEC09-06JAN10:100MG,TID?07JAN10-02MAR12:100MG,BID
     Route: 048
     Dates: start: 20091217, end: 20120302
  5. SODIUM VALPROATE [Suspect]
     Indication: ELECTROENCEPHALOGRAM ABNORMAL
     Dosage: 17DEC09-06JAN10:100MG,TID?07JAN10-02MAR12:100MG,BID
     Route: 048
     Dates: start: 20091217, end: 20120302
  6. CRESTOR [Suspect]
     Dosage: TAB
     Route: 048
  7. JANUVIA [Suspect]
     Dosage: TAB
     Route: 048

REACTIONS (4)
  - Rhabdomyolysis [Recovered/Resolved]
  - Herpes zoster [Unknown]
  - Gastroenteritis radiation [Unknown]
  - Haematuria [Unknown]
